FAERS Safety Report 6395139-8 (Version None)
Quarter: 2009Q4

REPORT INFORMATION
  Report Type: 
  Country: None (occurrence: None)
  Receive Date: 20091009
  Receipt Date: 20090929
  Transmission Date: 20100525
  Serious: Yes (Hospitalization, Other)
  Sender: FDA-Public Use
  Company Number: US-ROCHE-651997

PATIENT
  Age: 71 Year
  Sex: Male

DRUGS (16)
  1. CELLCEPT [Suspect]
     Route: 065
     Dates: end: 20010101
  2. CELLCEPT [Suspect]
     Dosage: DOSE: 500 MG IN MORNING, 250 MG IN EVENING, DOSE LOWERED
     Route: 065
     Dates: start: 20010101
  3. CELLCEPT [Suspect]
     Dosage: 500 MG 1 EVERY MORNING AND 250 MG AT NIGHT BEFORE BED
     Route: 065
     Dates: start: 20081007
  4. INSULIN [Concomitant]
  5. HYTRIN [Concomitant]
     Dosage: 1 MG DAILY PRN AND 1-2 MG IN AM AS NEEDED FOR ELEVATED BP
     Dates: start: 20081128
  6. ZOCOR [Concomitant]
     Dosage: AT BED TIME
  7. GABAPENTIN [Concomitant]
     Dosage: 1 TO 3 AS NEEDED
     Dates: start: 20080822
  8. CYCLOSPORINE [Concomitant]
     Dosage: 3AM/2PM
     Dates: start: 20090702
  9. ASPIRIN [Concomitant]
     Dates: start: 20071128
  10. TYLENOL (CAPLET) [Concomitant]
     Dates: start: 20071128
  11. GENGRAF [Concomitant]
  12. COZAAR [Concomitant]
  13. BENICAR [Concomitant]
     Dosage: AT BED TIME
  14. TUMS [Concomitant]
     Dosage: AS NEEDED
  15. HYDROCHLOROTHIAZIDE [Concomitant]
  16. HUMULIN N [Concomitant]
     Dosage: 17U/12U AS DIRECTED

REACTIONS (34)
  - ACQUIRED DIAPHRAGMATIC EVENTRATION [None]
  - ANAEMIA [None]
  - BLOOD CHOLESTEROL INCREASED [None]
  - BRONCHITIS [None]
  - CONSTIPATION [None]
  - DEPRESSION [None]
  - DIABETES MELLITUS [None]
  - DRUG LEVEL INCREASED [None]
  - DYSPNOEA [None]
  - FATIGUE [None]
  - HEADACHE [None]
  - HYPERLIPIDAEMIA [None]
  - HYPERTENSION [None]
  - HYPOTENSION [None]
  - HYPOTHYROIDISM [None]
  - INSOMNIA [None]
  - JOINT RANGE OF MOTION DECREASED [None]
  - MUSCLE SPASMS [None]
  - MYELITIS TRANSVERSE [None]
  - NEUROPATHY PERIPHERAL [None]
  - NOCTURIA [None]
  - OBSTRUCTIVE AIRWAYS DISORDER [None]
  - OEDEMA PERIPHERAL [None]
  - POST PROCEDURAL STROKE [None]
  - RENAL DISORDER [None]
  - RENAL FAILURE CHRONIC [None]
  - RESTLESS LEGS SYNDROME [None]
  - SEASONAL AFFECTIVE DISORDER [None]
  - SNORING [None]
  - STENT PLACEMENT [None]
  - SYNCOPE [None]
  - TACHYCARDIA [None]
  - TRANSPLANT REJECTION [None]
  - WHITE BLOOD CELL COUNT DECREASED [None]
